FAERS Safety Report 23158765 (Version 1)
Quarter: 2023Q4

REPORT INFORMATION
  Report Type: Spontaneous
  Country: US (occurrence: US)
  Receive Date: 20231108
  Receipt Date: 20231108
  Transmission Date: 20240110
  Serious: No
  Sender: FDA-Public Use
  Company Number: US-INCYTE CORPORATION-2023IN011340

PATIENT

DRUGS (1)
  1. JAKAFI [Suspect]
     Active Substance: RUXOLITINIB
     Indication: Acute myeloid leukaemia
     Dosage: ONE-HALF TABLET, BID
     Route: 048
     Dates: start: 202309

REACTIONS (6)
  - Off label use [Unknown]
  - Wrong technique in product usage process [Unknown]
  - Oedema [Unknown]
  - Discomfort [Unknown]
  - Decreased activity [Unknown]
  - Pain [Unknown]

NARRATIVE: CASE EVENT DATE: 20230901
